FAERS Safety Report 4932762-9 (Version None)
Quarter: 2006Q1

REPORT INFORMATION
  Report Type: 
  Country: None (occurrence: None)
  Receive Date: 20060302
  Receipt Date: 20060302
  Transmission Date: 20060701
  Serious: Yes (Life-Threatening)
  Sender: FDA-Public Use
  Company Number: None

PATIENT
  Sex: Female
  Weight: 58.0604 kg

DRUGS (2)
  1. ORTHO TRI-CYCLEN [Suspect]
     Indication: HAEMORRHAGE
     Dosage: ONE TABLET DAILY ORAL
     Route: 048
     Dates: start: 20040501, end: 20040701
  2. ORTHO TRI-CYCLEN [Suspect]
     Indication: MENSTRUATION IRREGULAR
     Dosage: ONE TABLET DAILY ORAL
     Route: 048
     Dates: start: 20040501, end: 20040701

REACTIONS (3)
  - MENSTRUATION IRREGULAR [None]
  - PALPITATIONS [None]
  - VAGINAL HAEMORRHAGE [None]
